FAERS Safety Report 6137208-3 (Version None)
Quarter: 2009Q1

REPORT INFORMATION
  Report Type: 
  Country: None (occurrence: None)
  Receive Date: 20090330
  Receipt Date: 20090324
  Transmission Date: 20090719
  Serious: Yes (Death)
  Sender: FDA-Public Use
  Company Number: NO-ABBOTT-09P-122-0563548-00

PATIENT
  Sex: Female

DRUGS (6)
  1. REDUCTIL 15MG [Suspect]
     Indication: OBESITY
     Route: 048
     Dates: start: 20081111
  2. VENTOLIN [Suspect]
     Indication: DYSPNOEA
     Route: 055
     Dates: end: 20090223
  3. VESICARE [Concomitant]
     Indication: INCONTINENCE
  4. IBUX [Concomitant]
     Indication: PAIN
  5. ATARAX [Concomitant]
     Indication: ANXIETY
  6. GLUCOPHAGE [Concomitant]
     Indication: TYPE 2 DIABETES MELLITUS

REACTIONS (3)
  - ANOXIC ENCEPHALOPATHY [None]
  - CARDIAC ARREST [None]
  - DYSPNOEA [None]
